FAERS Safety Report 9370350 (Version 3)
Quarter: 2013Q4

REPORT INFORMATION
  Report Type: Spontaneous
  Country: US (occurrence: US)
  Receive Date: 20130626
  Receipt Date: 20131203
  Transmission Date: 20140711
  Serious: Yes (Other)
  Sender: FDA-Public Use
  Company Number: US-PFIZER INC-2013187456

PATIENT
  Sex: Male

DRUGS (4)
  1. LIPITOR [Suspect]
     Dosage: 10 MG, UNK
     Dates: start: 1998
  2. LIPITOR [Suspect]
     Dosage: 40 MG, UNK
  3. LIPITOR [Suspect]
     Dosage: 20 MG, UNK
  4. ZOCOR [Suspect]
     Dosage: UNK

REACTIONS (3)
  - IIIrd nerve disorder [Recovered/Resolved]
  - Neuropathy peripheral [Recovered/Resolved]
  - Paraesthesia [Recovered/Resolved]
